FAERS Safety Report 6494505-X (Version None)
Quarter: 2009Q4

REPORT INFORMATION
  Report Type: 
  Country: None (occurrence: None)
  Receive Date: 20091214
  Receipt Date: 20090225
  Transmission Date: 20100525
  Serious: No
  Sender: FDA-Public Use
  Company Number: US-BRISTOL-MYERS SQUIBB COMPANY-14521207

PATIENT
  Age: 54 Year
  Sex: Female

DRUGS (9)
  1. ABILIFY [Suspect]
     Indication: MAJOR DEPRESSION
  2. FLUOXETINE [Concomitant]
  3. LAMICTAL [Concomitant]
  4. ZOCOR [Concomitant]
  5. DIAZID [Concomitant]
  6. PRILOSEC [Concomitant]
  7. MOBIC [Concomitant]
  8. FLEXERIL [Concomitant]
  9. KLONOPIN [Concomitant]

REACTIONS (1)
  - SUICIDAL IDEATION [None]
